FAERS Safety Report 4347065-3 (Version None)
Quarter: 2004Q2

REPORT INFORMATION
  Report Type: 
  Country: None (occurrence: None)
  Receive Date: 20040422
  Receipt Date: 20040412
  Transmission Date: 20050107
  Serious: Yes (Other)
  Sender: FDA-Public Use
  Company Number: JP-JNJFOC-20040402957

PATIENT
  Age: 66 Year
  Sex: Male

DRUGS (3)
  1. LEVOFLOXACIN [Suspect]
     Indication: CYSTITIS
     Dosage: ORAL
     Route: 048
     Dates: start: 20040307
  2. TICLOPIDINE HCL [Suspect]
     Indication: PROPHYLAXIS
     Dosage: 200 MG, ORAL
     Route: 048
     Dates: start: 20040301, end: 20040401
  3. HEPARIN [Concomitant]

REACTIONS (6)
  - ACUTE MYOCARDIAL INFARCTION [None]
  - ANAEMIA [None]
  - CYSTITIS [None]
  - HAEMOLYTIC URAEMIC SYNDROME [None]
  - THROMBOTIC THROMBOCYTOPENIC PURPURA [None]
  - URINARY OCCULT BLOOD POSITIVE [None]
